FAERS Safety Report 6242171-0 (Version None)
Quarter: 2009Q2

REPORT INFORMATION
  Report Type: 
  Country: None (occurrence: None)
  Receive Date: 20090624
  Receipt Date: 20090618
  Transmission Date: 20091009
  Serious: Yes (Disabling, Other)
  Sender: FDA-Public Use
  Company Number: BR-BAYER-200818031LA

PATIENT
  Age: 22 Year
  Sex: Female

DRUGS (2)
  1. BETAFERON [Suspect]
     Indication: MULTIPLE SCLEROSIS
     Dosage: BETAJECT
     Route: 058
     Dates: start: 20080817, end: 20090201
  2. SERTRALINE [Concomitant]
     Indication: AGITATION
     Dosage: TOTAL DAILY DOSE: 50 MG
     Route: 048
     Dates: start: 20080601, end: 20080601

REACTIONS (9)
  - ABASIA [None]
  - HEADACHE [None]
  - INJECTION SITE PAIN [None]
  - INSOMNIA [None]
  - IRRITABILITY [None]
  - MOBILITY DECREASED [None]
  - MUSCLE RIGIDITY [None]
  - PAIN IN EXTREMITY [None]
  - SOMNOLENCE [None]
